FAERS Safety Report 10220484 (Version 1)
Quarter: 2014Q2

REPORT INFORMATION
  Report Type: Spontaneous
  Country: US (occurrence: US)
  Receive Date: 20140606
  Receipt Date: 20140606
  Transmission Date: 20141212
  Serious: No
  Sender: FDA-Public Use
  Company Number: US-009507513-1405USA013252

PATIENT
  Sex: Male

DRUGS (1)
  1. RAGWITEK [Suspect]
     Indication: HYPERSENSITIVITY
     Dosage: DAILY DOSE:ONE TABLET PER DAY(RAGWITEK TABLET 12 AMB A1-U)
     Route: 060

REACTIONS (3)
  - Throat irritation [Unknown]
  - Ear pruritus [Unknown]
  - Oropharyngeal pain [Unknown]
